FAERS Safety Report 12220925 (Version 1)
Quarter: 2016Q1

REPORT INFORMATION
  Report Type: Spontaneous
  Country: US (occurrence: None)
  Receive Date: 20160329
  Receipt Date: 20160329
  Transmission Date: 20160526
  Serious: No
  Sender: FDA-Public Use
  Company Number: None

PATIENT
  Age: 72 Year
  Sex: Female

DRUGS (3)
  1. REPATHA [Suspect]
     Active Substance: EVOLOCUMAB
     Indication: HYPERLIPIDAEMIA
     Route: 058
     Dates: start: 20160323, end: 20160328
  2. ATENOLOL. [Concomitant]
     Active Substance: ATENOLOL
  3. PROLIA [Concomitant]
     Active Substance: DENOSUMAB

REACTIONS (1)
  - Rash [None]

NARRATIVE: CASE EVENT DATE: 20160324
